FAERS Safety Report 13434319 (Version 1)
Quarter: 2017Q2

REPORT INFORMATION
  Report Type: Spontaneous
  Country: US (occurrence: US)
  Receive Date: 20170412
  Receipt Date: 20170412
  Transmission Date: 20170830
  Serious: No
  Sender: FDA-Public Use
  Company Number: None

PATIENT
  Age: 56 Year
  Sex: Male

DRUGS (1)
  1. TALTZ [Suspect]
     Active Substance: IXEKIZUMAB
     Indication: PSORIASIS
     Route: 058
     Dates: start: 20170406, end: 20170410

REACTIONS (6)
  - Injection site pain [None]
  - Injection site swelling [None]
  - Peripheral swelling [None]
  - Injection site erythema [None]
  - Joint swelling [None]
  - Injection site pruritus [None]

NARRATIVE: CASE EVENT DATE: 20170406
